FAERS Safety Report 7443757-8 (Version None)
Quarter: 2011Q2

REPORT INFORMATION
  Report Type: 
  Country: None (occurrence: None)
  Receive Date: 20110428
  Receipt Date: 20110415
  Transmission Date: 20111010
  Serious: Yes (Hospitalization, Other)
  Sender: FDA-Public Use
  Company Number: CA-CELGENEUS-028-21880-11012730

PATIENT
  Sex: Male
  Weight: 80.4 kg

DRUGS (20)
  1. HEPARIN [Concomitant]
     Dosage: 5000 UNITS
     Route: 058
     Dates: start: 20110101
  2. PANTOPRAZOLE SODIUM [Concomitant]
     Indication: GASTROOESOPHAGEAL REFLUX PROPHYLAXIS
     Dosage: 40 MILLIGRAM
     Route: 048
     Dates: start: 20110103
  3. PREDNISONE [Suspect]
     Dosage: 25 MILLIGRAM
     Route: 048
     Dates: start: 20110107
  4. SENECOT [Concomitant]
     Indication: CONSTIPATION
     Dosage: 17.2 MILLIGRAM
     Route: 048
     Dates: start: 20110114
  5. AMIODARONE [Concomitant]
     Indication: ATRIAL FIBRILLATION
     Dosage: 150 MILLIGRAM
     Route: 051
     Dates: start: 20110102, end: 20110104
  6. FAMOTIDINE [Concomitant]
     Indication: GASTROOESOPHAGEAL REFLUX PROPHYLAXIS
     Dosage: 20 MILLIGRAM
     Route: 051
     Dates: start: 20101231, end: 20110103
  7. HYDRATION [Concomitant]
     Route: 065
  8. DOCUSATE SODIUM [Concomitant]
     Indication: CONSTIPATION
     Dosage: 100 MILLIGRAM
     Route: 048
     Dates: start: 20110114
  9. METOPROLOL [Concomitant]
     Indication: ATRIAL FIBRILLATION
     Dosage: 25 MILLIGRAM
     Route: 048
     Dates: start: 20110103, end: 20110103
  10. DIMENHYDRINATE [Concomitant]
     Indication: PAIN MANAGEMENT
     Dosage: 50 MILLIGRAM
     Route: 051
     Dates: start: 20110119
  11. NABILONE [Concomitant]
  12. PREGABALIN [Concomitant]
     Dosage: 150 MILLIGRAM
     Route: 048
     Dates: start: 20110113
  13. CYCLOPHOSPHAMIDE [Suspect]
     Indication: MULTIPLE MYELOMA
     Dosage: 100 MILLIGRAM/SQ. METER
     Route: 065
     Dates: start: 20080710, end: 20110101
  14. HYDROMORPH CONTIN CR [Concomitant]
     Indication: PAIN MANAGEMENT
     Dosage: 60 MILLIGRAM
     Route: 048
     Dates: start: 20110113
  15. HYDROMORPHONE [Concomitant]
     Indication: PAIN MANAGEMENT
     Dosage: 12 MILLIGRAM
     Route: 048
     Dates: start: 20110117
  16. NABILONE [Concomitant]
     Indication: PAIN MANAGEMENT
     Dosage: 1 MILLIGRAM
     Route: 048
     Dates: start: 20110113
  17. REVLIMID [Suspect]
     Indication: MULTIPLE MYELOMA
     Dosage: 15 MILLIGRAM
     Route: 048
     Dates: start: 20080710, end: 20110112
  18. DILTIAZEM [Concomitant]
     Indication: ATRIAL FIBRILLATION
     Dosage: 30 MILLIGRAM
     Route: 048
     Dates: start: 20101231
  19. INSULIN [Concomitant]
     Dosage: SLIDING SCALE
     Route: 065
  20. PREDNISONE [Suspect]
     Indication: MULTIPLE MYELOMA
     Dosage: 50 MILLIGRAM
     Route: 065
     Dates: start: 20080710

REACTIONS (1)
  - PANCREATIC CARCINOMA METASTATIC [None]
